FAERS Safety Report 8460262 (Version 3)
Quarter: 2012Q4

REPORT INFORMATION
  Report Type: 
  Country: US (occurrence: US)
  Receive Date: 20120315
  Receipt Date: 20121005
  Transmission Date: 20130627
  Serious: No
  Sender: FDA-Public Use
  Company Number: PHEH2012US005835

PATIENT
  Age: 68 Year
  Sex: Male
  Weight: 104.31 kg

DRUGS (8)
  1. TASIGNA [Suspect]
     Dosage: 400 mg, BID
     Route: 048
  2. TASIGNA [Suspect]
     Dosage: 200 mg, BID
     Route: 048
  3. DIOVAN [Concomitant]
  4. LEVOTHYROXINE [Concomitant]
  5. VERAPAMIL [Concomitant]
  6. DIGOXIN [Concomitant]
  7. GABAPENTIN [Concomitant]
  8. PRAMIPEXOLE [Concomitant]

REACTIONS (5)
  - Ageusia [Unknown]
  - Pruritus [Unknown]
  - Dry skin [Unknown]
  - Hair disorder [Unknown]
  - Pain [Unknown]
